FAERS Safety Report 24937157 (Version 1)
Quarter: 2025Q1

REPORT INFORMATION
  Report Type: Spontaneous
  Country: IT (occurrence: IT)
  Receive Date: 20250206
  Receipt Date: 20250206
  Transmission Date: 20250408
  Serious: Yes (Life-Threatening, Other)
  Sender: SANOFI AVENTIS
  Company Number: IT-SA-2025SA032803

PATIENT
  Age: 24 Year
  Sex: Female

DRUGS (1)
  1. DUPIXENT [Suspect]
     Active Substance: DUPILUMAB
     Indication: Dermatitis atopic
     Dosage: 300 MG, QOW (2 TIMES EVERY MONTH)
     Route: 058
     Dates: start: 2019, end: 202501

REACTIONS (2)
  - Systemic scleroderma [Recovered/Resolved with Sequelae]
  - Conjunctivitis [Unknown]

NARRATIVE: CASE EVENT DATE: 20241201
